FAERS Safety Report 5722129-8 (Version None)
Quarter: 2008Q2

REPORT INFORMATION
  Report Type: 
  Country: None (occurrence: None)
  Receive Date: 20080429
  Receipt Date: 20070518
  Transmission Date: 20081010
  Serious: No
  Sender: FDA-Public Use
  Company Number: US-ASTRAZENECA-2007UW12526

PATIENT
  Age: 33 Year
  Sex: Male
  Weight: 61.2 kg

DRUGS (1)
  1. NEXIUM [Suspect]
     Indication: GASTROOESOPHAGEAL REFLUX DISEASE
     Route: 048
     Dates: start: 20070401

REACTIONS (3)
  - FLATULENCE [None]
  - ILL-DEFINED DISORDER [None]
  - PAIN [None]
